FAERS Safety Report 8255467-8 (Version None)
Quarter: 2012Q1

REPORT INFORMATION
  Report Type: 
  Country: None (occurrence: None)
  Receive Date: 20120322
  Receipt Date: 20111229
  Transmission Date: 20120608
  Serious: Yes (Hospitalization)
  Sender: FDA-Public Use
  Company Number: UTC-012923

PATIENT
  Age: 70 Year
  Sex: Female
  Weight: 63.6 kg

DRUGS (2)
  1. TYVASO [Suspect]
     Indication: COR PULMONALE CHRONIC
     Dosage: 18-54 MICROGRAMS (4 IN 1 D), INHALATION
     Route: 055
     Dates: start: 20110831
  2. LETAIRIS [Concomitant]

REACTIONS (3)
  - SURGERY [None]
  - FATIGUE [None]
  - OROPHARYNGEAL PAIN [None]
